FAERS Safety Report 5857457-9 (Version None)
Quarter: 2008Q3

REPORT INFORMATION
  Report Type: 
  Country: None (occurrence: None)
  Receive Date: 20080825
  Receipt Date: 20080825
  Transmission Date: 20090109
  Serious: Yes (Other)
  Sender: FDA-Public Use
  Company Number: None

PATIENT
  Age: 52 Year
  Sex: Female
  Weight: 81.6475 kg

DRUGS (1)
  1. METFORMIN HCL [Suspect]
     Indication: TYPE 2 DIABETES MELLITUS
     Dosage: 500MG 1 A DAY BUCCAL
     Route: 002
     Dates: start: 20080712, end: 20080812

REACTIONS (4)
  - CONTUSION [None]
  - PAIN [None]
  - PARAESTHESIA [None]
  - URTICARIA [None]
